FAERS Safety Report 10699558 (Version 1)
Quarter: 2015Q1

REPORT INFORMATION
  Report Type: Spontaneous
  Country: US (occurrence: US)
  Receive Date: 20150109
  Receipt Date: 20150109
  Transmission Date: 20150721
  Serious: No
  Sender: FDA-Public Use
  Company Number: US-OPTIMER-20140191

PATIENT
  Age: 76 Year
  Sex: Female
  Weight: 56.69 kg

DRUGS (6)
  1. DIFICID [Suspect]
     Active Substance: FIDAXOMICIN
     Indication: CLOSTRIDIUM DIFFICILE COLITIS
     Dosage: 200 MG, BID
     Route: 048
     Dates: start: 201405
  2. ARCOXIA [Concomitant]
     Active Substance: ETORICOXIB
     Indication: ARTHRITIS
     Dosage: 90 MG, QD
     Route: 048
  3. LIALDA [Concomitant]
     Active Substance: MESALAMINE
     Indication: COLITIS
     Dosage: UNK
     Dates: start: 201403
  4. PREDNISONE. [Concomitant]
     Active Substance: PREDNISONE
     Indication: ARTHROPATHY
     Dosage: 5 MG, QD
     Route: 048
  5. PREDNISONE. [Concomitant]
     Active Substance: PREDNISONE
     Indication: COLITIS
  6. DIFICID [Suspect]
     Active Substance: FIDAXOMICIN
     Dosage: 200 MG, BID
     Route: 048
     Dates: start: 20140707

REACTIONS (2)
  - Diarrhoea [Recovering/Resolving]
  - Weight decreased [Unknown]

NARRATIVE: CASE EVENT DATE: 20140705
